FAERS Safety Report 4719491-1 (Version None)
Quarter: 2005Q3

REPORT INFORMATION
  Report Type: 
  Country: None (occurrence: None)
  Receive Date: 20050719
  Receipt Date: 20050719
  Transmission Date: 20060218
  Serious: Yes (Hospitalization)
  Sender: FDA-Public Use
  Company Number: None

PATIENT
  Sex: Male

DRUGS (17)
  1. OXYCODONE 5 MG [Suspect]
     Indication: PAIN
     Dosage: 20 MG Q 3 HR PM ORAL
     Route: 048
  2. INSULIN [Concomitant]
  3. GUAFENESIN [Concomitant]
  4. DIGOXIN [Concomitant]
  5. DILTIAZEM [Concomitant]
  6. FUROSEMIDE [Concomitant]
  7. LORAZEPAM [Concomitant]
  8. APAP TAB [Concomitant]
  9. LISINOPRIL [Concomitant]
  10. MAALOZ [Concomitant]
  11. ASPIRIN [Concomitant]
  12. POTASSIUM CHLORIDE [Concomitant]
  13. LEVOTHYROXINE SODIUM [Concomitant]
  14. IPRATROPIUM BROMIDE [Concomitant]
  15. FORMOTEROL [Concomitant]
  16. ALBUTEROL [Concomitant]
  17. ISOSORBIDE MONONITRATE [Concomitant]

REACTIONS (2)
  - CONSTIPATION [None]
  - PAIN [None]
